FAERS Safety Report 6106052-5 (Version None)
Quarter: 2009Q1

REPORT INFORMATION
  Report Type: 
  Country: None (occurrence: None)
  Receive Date: 20090227
  Receipt Date: 20080709
  Transmission Date: 20090719
  Serious: Yes (Hospitalization, Other)
  Sender: FDA-Public Use
  Company Number: 170631USA

PATIENT
  Age: 27 Year
  Sex: Female

DRUGS (5)
  1. PROPOFOL [Suspect]
     Indication: ANAESTHESIA
     Dosage: INTRAVENOUS
     Route: 042
     Dates: start: 20080417
  2. PAROXETINE HYDROCHLORIDE [Concomitant]
  3. LEVOFLOXACIN [Concomitant]
  4. DIAZEPAM [Concomitant]
  5. BUDESONIDE [Concomitant]

REACTIONS (2)
  - ANAPHYLACTIC REACTION [None]
  - PNEUMONIA [None]
